FAERS Safety Report 9695433 (Version 1)
Quarter: 2013Q4

REPORT INFORMATION
  Report Type: Spontaneous
  Country: MX (occurrence: MX)
  Receive Date: 20131119
  Receipt Date: 20131119
  Transmission Date: 20140711
  Serious: Yes (Other)
  Sender: FDA-Public Use
  Company Number: PHHY2013MX131021

PATIENT
  Age: 73 Year
  Sex: Female

DRUGS (4)
  1. ACLASTA [Suspect]
     Indication: OSTEOPOROSIS
     Dosage: 5 MG/100ML, ANNUALLY
     Route: 042
     Dates: start: 200911
  2. CONCOR [Concomitant]
     Indication: HYPERTENSION
     Dosage: 2.5 MG, UNK
     Dates: start: 200811
  3. METICORTEN [Concomitant]
     Indication: ADDISON^S DISEASE
     Dosage: UNK UKN, UNK
     Dates: start: 197411
  4. TUMS [Concomitant]
     Indication: BONE DISORDER
     Dosage: UNK UKN, UNK
     Dates: start: 200911

REACTIONS (2)
  - Hypothyroidism [Not Recovered/Not Resolved]
  - Memory impairment [Not Recovered/Not Resolved]
